FAERS Safety Report 18793522 (Version 2)
Quarter: 2021Q1

REPORT INFORMATION
  Report Type: Spontaneous
  Country: US (occurrence: US)
  Receive Date: 20210127
  Receipt Date: 20210225
  Transmission Date: 20210419
  Serious: No
  Sender: FDA-Public Use
  Company Number: US-PFIZER INC-2021062003

PATIENT
  Age: 74 Year
  Sex: Female
  Weight: 77.1 kg

DRUGS (1)
  1. PREMARIN [Suspect]
     Active Substance: ESTROGENS, CONJUGATED
     Indication: PAIN
     Dosage: UNK [FOR TWO WEEKS AT NIGHT THEN 2 WEEKS FOR 30 DAYS]
     Route: 067
     Dates: start: 20210121

REACTIONS (1)
  - Off label use [Unknown]

NARRATIVE: CASE EVENT DATE: 20210121
